FAERS Safety Report 5748420-7 (Version None)
Quarter: 2008Q2

REPORT INFORMATION
  Report Type: 
  Country: None (occurrence: None)
  Receive Date: 20080523
  Receipt Date: 20080519
  Transmission Date: 20081010
  Serious: Yes (Other)
  Sender: FDA-Public Use
  Company Number: AU-MERCK-0802AUS00206

PATIENT
  Age: 59 Year
  Sex: Female
  Weight: 70 kg

DRUGS (1)
  1. FOSAMAX [Suspect]
     Indication: OSTEOPOROSIS
     Route: 048
     Dates: start: 20010101, end: 20070501

REACTIONS (4)
  - BONE DENSITY DECREASED [None]
  - GINGIVITIS [None]
  - THYROID CANCER [None]
  - VOCAL CORD NEOPLASM [None]
